FAERS Safety Report 5030502-9 (Version None)
Quarter: 2006Q2

REPORT INFORMATION
  Report Type: 
  Country: None (occurrence: None)
  Receive Date: 20060620
  Receipt Date: 20060519
  Transmission Date: 20061013
  Serious: Yes (Hospitalization)
  Sender: FDA-Public Use
  Company Number: US-ABBOTT-06P-163-0335952-00

PATIENT
  Sex: Male

DRUGS (2)
  1. OMNICEF [Suspect]
     Indication: OTITIS MEDIA
     Dosage: 1 TSP BID
     Route: 048
     Dates: start: 20060213, end: 20060223
  2. RANITIDINE HYDROCHLORIDE [Concomitant]
     Indication: DRUG USE FOR UNKNOWN INDICATION

REACTIONS (3)
  - AURICULAR SWELLING [None]
  - OEDEMA GENITAL [None]
  - URTICARIA [None]
